FAERS Safety Report 5636875-8 (Version None)
Quarter: 2008Q1

REPORT INFORMATION
  Report Type: 
  Country: None (occurrence: None)
  Receive Date: 20080219
  Receipt Date: 20080204
  Transmission Date: 20080703
  Serious: Yes (Hospitalization)
  Sender: FDA-Public Use
  Company Number: CHNY2008DE00796

PATIENT
  Age: 81 Year
  Sex: Female

DRUGS (28)
  1. TAVEGIL (NCH)(CLEMASTINE HYDROGEN FUMARATE) UNKNOWN [Suspect]
     Indication: HYPERSENSITIVITY
     Dosage: 1 DF, TID, ORAL
     Route: 048
     Dates: start: 20030601, end: 20030607
  2. MOLSHIEXAL (NGX)(MOLSIDOMINE) UNKNOWN [Suspect]
     Indication: ANGINA PECTORIS
     Dosage: 8 MG, QD, ORAL
     Route: 048
     Dates: start: 20030327, end: 20030528
  3. RANITIC (NGX)(RANITIDINE HYDROCHLORIDE) UNKNOWN [Suspect]
     Indication: PROPHYLAXIS
     Dosage: 300 MG, QD, ORAL
     Route: 048
     Dates: start: 20030327, end: 20030528
  4. OMEPRAZOLE [Suspect]
     Dosage: 20 MG, QD, ORAL
     Route: 048
     Dates: start: 20030607, end: 20030619
  5. NITROGLYCERIN [Suspect]
     Indication: ANGINA PECTORIS
     Dosage: ORAL
     Route: 048
     Dates: start: 20030520, end: 20030531
  6. FUROSEMIDE RATIOPHARM(FUROSEMIDE) [Suspect]
     Dosage: 125 MG, BID, ORAL
     Route: 048
     Dates: start: 20030423, end: 20030527
  7. BISOPROLOL RATIOPHARM(BISOPROLOL HEMIFUMARATE) [Suspect]
     Indication: HYPERTENSION
     Dosage: 0.5 DF, QD, ORAL
     Route: 048
     Dates: start: 20030327, end: 20030528
  8. PIMPAMPERONE(PIMPAMPERONE) [Suspect]
     Indication: SLEEP DISORDER
     Dosage: 5 ML, QD, ORAL
     Route: 048
     Dates: start: 20030514, end: 20030611
  9. HEPARIN [Suspect]
     Indication: PROPHYLAXIS
     Dosage: SUBCUTANEOUS
     Route: 058
     Dates: start: 20030528, end: 20030607
  10. ISDN ^RATIOPHARM^(ISOSORBIDE DINITRATE) [Suspect]
     Indication: ANGINA PECTORIS
     Dosage: 40 MG, BID; ORAL
     Route: 048
     Dates: start: 20030327, end: 20030528
  11. PARACODIN BITARTRATE INJ [Suspect]
     Indication: COUGH
     Dosage: 20 ML, TID; ORAL
     Route: 048
     Dates: start: 20030327, end: 20030619
  12. CONCOR(BISOPROLOL FUMARATE) [Suspect]
     Indication: HYPERTENSION
     Dosage: 0.5 DF, QD; ORAL
     Route: 048
     Dates: start: 20030327
  13. ZOPICLONE(ZOPICLONE) [Suspect]
     Indication: SLEEP DISORDER
     Dosage: ORAL
     Route: 048
     Dates: start: 20030505
  14. DIGIMERCK(DIGITOXIN) [Suspect]
     Indication: CARDIAC FAILURE
     Dosage: 0.05 MG, QD; ORAL
     Route: 048
     Dates: start: 20030327
  15. PANTHENOL ^RATIOPHARM^(DEXPANTHENOL) [Suspect]
     Indication: EPISTAXIS
     Dosage: TOPICAL
     Route: 061
     Dates: start: 20030520
  16. ACTRAPHANE HM(INSULIN HUMAN INJECTION, ISOPHANE) [Suspect]
     Indication: DIABETES MELLITUS
     Dosage: SUBCUTANEOUS
     Route: 058
     Dates: start: 20030423
  17. ACETYLSALICYLIC ACID SRT [Suspect]
     Indication: HAEMODILUTION
     Dosage: ORAL
     Route: 048
     Dates: start: 20030327, end: 20030603
  18. ACETYLSALICYLIC ACID SRT [Suspect]
     Indication: HAEMODILUTION
     Dosage: ORAL
     Route: 048
     Dates: start: 20030608
  19. EUNERPAN(MELPERONE HYDROCHLORIDE) [Suspect]
     Indication: CONFUSIONAL STATE
     Dosage: 5 ML, QD; ORAL
     Route: 048
     Dates: start: 20030528, end: 20030606
  20. CORVATON(MOLSIDOMINE) [Suspect]
     Indication: ANGINA PECTORIS
     Dosage: 1 DF, QD; ORAL
     Route: 048
     Dates: start: 20030528, end: 20030607
  21. ISOSORBIDE DINITRATE [Suspect]
     Indication: ANGINA PECTORIS
     Dosage: 40 MG, BID; ORAL
     Route: 048
     Dates: start: 20030528, end: 20030607
  22. ALLOPURINOL [Suspect]
     Indication: HYPERURICAEMIA
     Dosage: 300 MG, QD; ORAL
     Route: 048
     Dates: start: 20030528, end: 20030604
  23. AQUAPHOR TABLET(XIPAMIDE) [Suspect]
     Dosage: 10 MG, QD; ORAL
     Route: 048
  24. LASIX [Suspect]
     Dosage: 125 MG, BID; ORAL
     Route: 048
     Dates: start: 20030528
  25. KALITRANS(POTASSIUM BICARBONATE) [Suspect]
     Dosage: 1 DF, BID; ORAL
     Route: 048
     Dates: start: 20030529, end: 20030607
  26. VALORON N /00628301/(NALOXONE HYDROCHLORIDE, TILIDINE HYDROCHLORIDE) [Suspect]
     Indication: PAIN
     Dosage: 1 DF, BID, ORAL
     Route: 048
     Dates: start: 20030604, end: 20030604
  27. KEPINOL(SULFAMETHOXAZOLE, TRIMETHOPRIM) [Suspect]
     Indication: URINARY TRACT INFECTION
     Dosage: 1 DF, BID; ORAL
     Route: 048
     Dates: start: 20030604, end: 20030606
  28. GODAMED(ACETYLSALICYLIC ACID, AMINOACETIC ACID) [Suspect]
     Indication: PROPHYLAXIS
     Dosage: 100 MG, QD; ORAL
     Route: 048
     Dates: start: 20030604, end: 20030607

REACTIONS (10)
  - BLISTER [None]
  - CONJUNCTIVITIS [None]
  - GENITAL EROSION [None]
  - LIP EROSION [None]
  - LIP SWELLING [None]
  - ORAL MUCOSA EROSION [None]
  - PRURITUS [None]
  - RASH [None]
  - SKIN EXFOLIATION [None]
  - STEVENS-JOHNSON SYNDROME [None]
